FAERS Safety Report 18945563 (Version 4)
Quarter: 2021Q2

REPORT INFORMATION
  Report Type: Spontaneous
  Country: US (occurrence: US)
  Receive Date: 20210226
  Receipt Date: 20210524
  Transmission Date: 20210717
  Serious: Yes (Other)
  Sender: FDA-Public Use
  Company Number: US-PFIZER INC-2021169695

PATIENT
  Age: 45 Year
  Sex: Female

DRUGS (2)
  1. GLUCOSE [Suspect]
     Active Substance: DEXTROSE
     Indication: HYPOGLYCAEMIA
     Dosage: 2 DF
     Route: 048
  2. GLUCOSE [Suspect]
     Active Substance: DEXTROSE
     Dosage: 3 DF
     Route: 048

REACTIONS (2)
  - Hypoglycaemia [Recovered/Resolved]
  - Seizure [Unknown]
